FAERS Safety Report 14487449 (Version 3)
Quarter: 2018Q1

REPORT INFORMATION
  Report Type: Spontaneous
  Country: MX (occurrence: MX)
  Receive Date: 20180205
  Receipt Date: 20180226
  Transmission Date: 20180509
  Serious: Yes (Death, Life-Threatening, Hospitalization)
  Sender: FDA-Public Use
  Company Number: PHHY2018MX018573

PATIENT
  Age: 84 Year

DRUGS (1)
  1. REVOLADE [Suspect]
     Active Substance: ELTROMBOPAG
     Indication: THROMBOCYTOPENIA
     Dosage: 50 MG, QD
     Route: 065

REACTIONS (6)
  - Coma [Unknown]
  - Acute respiratory failure [Fatal]
  - Cardio-respiratory arrest [Unknown]
  - Sepsis [Fatal]
  - Thrombocytopenia [Unknown]
  - Neurodegenerative disorder [Unknown]
